FAERS Safety Report 11340189 (Version 2)
Quarter: 2015Q3

REPORT INFORMATION
  Report Type: Spontaneous
  Country: GB (occurrence: GB)
  Receive Date: 20150805
  Receipt Date: 20150805
  Transmission Date: 20151125
  Serious: Yes (Hospitalization, Other)
  Sender: FDA-Public Use
  Company Number: GB-WATSON-2015-16224

PATIENT
  Age: 75 Year
  Sex: Female

DRUGS (4)
  1. ACYCLOVIR (UNKNOWN) [Suspect]
     Active Substance: ACYCLOVIR
     Indication: ORAL HERPES
     Dosage: 10 MG/KG, TID
     Route: 042
  2. NIFEDIPINE (UNKNOWN) [Suspect]
     Active Substance: NIFEDIPINE
     Indication: HYPERTENSION
     Dosage: 60 MG, DAILY
     Route: 065
  3. ACYCLOVIR (UNKNOWN) [Suspect]
     Active Substance: ACYCLOVIR
     Indication: HERPES SIMPLEX ENCEPHALITIS
     Dosage: 1000 MG, DAILY(200 MG FIVE TIMES A DAY)
     Route: 048
  4. ATENOLOL (UNKNOWN) [Suspect]
     Active Substance: ATENOLOL
     Indication: HYPERTENSION
     Dosage: 50 MG, DAILY
     Route: 065

REACTIONS (9)
  - Seizure [Recovered/Resolved]
  - Acute kidney injury [Recovered/Resolved]
  - Coma scale abnormal [Recovered/Resolved]
  - Potentiating drug interaction [Recovered/Resolved]
  - Ataxia [Recovered/Resolved]
  - Hypotension [Recovered/Resolved]
  - Hallucination, visual [Recovered/Resolved]
  - Confusional state [Recovered/Resolved]
  - Drug level increased [Recovered/Resolved]
